FAERS Safety Report 14329487 (Version 2)
Quarter: 2018Q1

REPORT INFORMATION
  Report Type: Report from Study
  Country: HK (occurrence: HK)
  Receive Date: 20171227
  Receipt Date: 20180104
  Transmission Date: 20180509
  Serious: Yes (Death)
  Sender: FDA-Public Use
  Company Number: HK-PFIZER INC-2017546404

PATIENT

DRUGS (3)
  1. PACLITAXEL. [Suspect]
     Active Substance: PACLITAXEL
     Indication: ADENOCARCINOMA GASTRIC
     Dosage: DOSE LEVEL II
  2. CARBOPLATIN. [Suspect]
     Active Substance: CARBOPLATIN
     Indication: ADENOCARCINOMA GASTRIC
     Dosage: DOSE LEVEL II
  3. EVEROLIMUS. [Suspect]
     Active Substance: EVEROLIMUS
     Indication: ADENOCARCINOMA GASTRIC
     Dosage: DOSE LEVEL II

REACTIONS (1)
  - Gastrointestinal haemorrhage [Fatal]
